FAERS Safety Report 7638291-6 (Version None)
Quarter: 2011Q3

REPORT INFORMATION
  Report Type: 
  Country: None (occurrence: None)
  Receive Date: 20110720
  Receipt Date: 20110705
  Transmission Date: 20111222
  Serious: Yes (Death)
  Sender: FDA-Public Use
  Company Number: UTC-008377

PATIENT
  Sex: Male

DRUGS (6)
  1. PANTOPRAZOL (PANTOPRAZOLE SODIUM) [Concomitant]
  2. HYDROCHLOROTHIAZIDE [Concomitant]
  3. REMODULIN [Suspect]
     Indication: PULMONARY HYPERTENSION
     Dosage: SUBCUTANEOUS
     Route: 058
     Dates: start: 20101001
  4. SINTROM [Concomitant]
  5. LISINOPRIL [Concomitant]
  6. LASIX [Concomitant]

REACTIONS (4)
  - PAIN [None]
  - DIARRHOEA [None]
  - VOMITING [None]
  - NAUSEA [None]
